FAERS Safety Report 25415905 (Version 1)
Quarter: 2025Q2

REPORT INFORMATION
  Report Type: Spontaneous
  Country: US (occurrence: US)
  Receive Date: 20250610
  Receipt Date: 20250610
  Transmission Date: 20250717
  Serious: Yes (Hospitalization, Other)
  Sender: VALIDUS
  Company Number: US-VALIDUS PHARMACEUTICALS LLC-VLDS-RB-2025-00046

PATIENT

DRUGS (10)
  1. LASIX [Suspect]
     Active Substance: FUROSEMIDE
     Indication: Hypervolaemia
     Route: 042
  2. LASIX [Suspect]
     Active Substance: FUROSEMIDE
     Route: 042
  3. ORENITRAM [Suspect]
     Active Substance: TREPROSTINIL
     Indication: Pulmonary arterial hypertension
     Route: 048
  4. ORENITRAM [Suspect]
     Active Substance: TREPROSTINIL
     Route: 048
  5. ORENITRAM [Suspect]
     Active Substance: TREPROSTINIL
     Route: 048
  6. ORENITRAM [Suspect]
     Active Substance: TREPROSTINIL
     Route: 048
  7. ORENITRAM [Suspect]
     Active Substance: TREPROSTINIL
     Route: 048
  8. TREPROSTINIL SODIUM [Suspect]
     Active Substance: TREPROSTINIL SODIUM
     Indication: Pulmonary arterial hypertension
     Route: 058
  9. TREPROSTINIL SODIUM [Suspect]
     Active Substance: TREPROSTINIL SODIUM
     Route: 058
  10. ADCIRCA [Concomitant]
     Active Substance: TADALAFIL
     Indication: Product used for unknown indication
     Route: 065

REACTIONS (17)
  - Pulmonary oedema [Unknown]
  - Pneumonia [Unknown]
  - Patient dissatisfaction with treatment [Unknown]
  - Hypervolaemia [Unknown]
  - Hypervolaemia [Unknown]
  - Infusion site pain [Unknown]
  - Infusion site swelling [Unknown]
  - Infusion site infection [Unknown]
  - Infusion site erythema [Unknown]
  - Drug intolerance [Unknown]
  - Myalgia [Unknown]
  - Back pain [Unknown]
  - Pain in extremity [Unknown]
  - Neck pain [Unknown]
  - Drug titration error [Unknown]
  - Extra dose administered [Unknown]
  - Therapy non-responder [Unknown]
